FAERS Safety Report 8571709 (Version 3)
Quarter: 2012Q4

REPORT INFORMATION
  Report Type: Report from Study
  Country: US (occurrence: US)
  Receive Date: 20120521
  Receipt Date: 20120926
  Transmission Date: 20130627
  Serious: Yes (Hospitalization)
  Sender: FDA-Public Use
  Company Number: US-ABBOTT-12P-163-0935012-00

PATIENT
  Age: 43 Year
  Sex: Female
  Weight: 81.27 kg

DRUGS (8)
  1. HUMIRA [Suspect]
     Indication: CROHN^S DISEASE
     Dosage: Loading dose
     Dates: start: 20120428, end: 20120428
  2. HUMIRA [Suspect]
     Dates: start: 20120730
  3. PREDNISONE [Concomitant]
     Indication: CROHN^S DISEASE
     Dosage: tapering daily dose
  4. GENERIC PREVACID [Concomitant]
     Indication: DYSPEPSIA
  5. THEOPHYLLINE [Concomitant]
     Indication: ASTHMA
  6. ALBUTEROL [Concomitant]
     Indication: PRODUCT USED FOR UNKNOWN INDICATION
     Dosage: PRN but does not need often, as needed
  7. MULTIVITAMIN [Concomitant]
     Indication: VITAMIN SUPPLEMENTATION
  8. SUDAFED [Concomitant]
     Indication: RESPIRATORY TRACT CONGESTION

REACTIONS (11)
  - Hypoaesthesia [Recovering/Resolving]
  - Muscular weakness [Unknown]
  - Blood potassium decreased [Recovered/Resolved]
  - Oropharyngeal pain [Unknown]
  - Pyrexia [Unknown]
  - Headache [Unknown]
  - Arthralgia [Unknown]
  - Oral mucosal blistering [Unknown]
  - Nuclear magnetic resonance imaging abnormal [Unknown]
  - Influenza [Unknown]
  - Blood pressure increased [Unknown]
